FAERS Safety Report 8881961 (Version 2)
Quarter: 2012Q4

REPORT INFORMATION
  Report Type: 
  Country: JP (occurrence: JP)
  Receive Date: 20121105
  Receipt Date: 20121212
  Transmission Date: 20130627
  Serious: Yes (Other)
  Sender: FDA-Public Use
  Company Number: JP-MYLANLABS-2012S1022108

PATIENT
  Age: 74 Year
  Sex: Male
  Weight: 50 kg

DRUGS (5)
  1. VANCOMYCIN [Suspect]
     Indication: PNEUMONIA
     Route: 041
     Dates: start: 20100715, end: 20100727
  2. FUNGUARD [Suspect]
     Indication: PRODUCT USED FOR UNKNOWN INDICATION
     Route: 041
     Dates: start: 20100717, end: 20100717
  3. FUNGUARD [Suspect]
     Indication: PRODUCT USED FOR UNKNOWN INDICATION
     Route: 041
     Dates: start: 20100718, end: 20100721
  4. ZOSYN [Concomitant]
     Indication: PRODUCT USED FOR UNKNOWN INDICATION
     Route: 041
     Dates: start: 20100714, end: 20100720
  5. CEFPIROME SULFATE [Concomitant]
     Indication: PRODUCT USED FOR UNKNOWN INDICATION
     Route: 041
     Dates: start: 20100721, end: 20100727

REACTIONS (1)
  - Liver disorder [Recovered/Resolved]
